FAERS Safety Report 10176900 (Version 1)
Quarter: 2014Q2

REPORT INFORMATION
  Report Type: Spontaneous
  Country: US (occurrence: None)
  Receive Date: 20140515
  Receipt Date: 20140515
  Transmission Date: 20141212
  Serious: Yes (Hospitalization)
  Sender: FDA-Public Use
  Company Number: None

PATIENT
  Age: 61 Year
  Sex: Female
  Weight: 64.4 kg

DRUGS (3)
  1. CISPLATIN [Suspect]
  2. FENTANYL (DURAGESIC) 25 MCG [Concomitant]
  3. MORPHINE CONCENTRATE (ROXANOL) 20MG [Concomitant]

REACTIONS (3)
  - Vomiting [None]
  - Constipation [None]
  - Ileus [None]
